FAERS Safety Report 7473539-2 (Version None)
Quarter: 2011Q2

REPORT INFORMATION
  Report Type: 
  Country: None (occurrence: None)
  Receive Date: 20110511
  Receipt Date: 20110503
  Transmission Date: 20111010
  Serious: Yes (Other)
  Sender: FDA-Public Use
  Company Number: US-MERCK-1012USA01885

PATIENT
  Age: 51 Year
  Sex: Female
  Weight: 55 kg

DRUGS (9)
  1. FOSAMAX [Suspect]
     Indication: OSTEOPOROSIS
     Route: 048
     Dates: start: 20020623, end: 20060705
  2. BONIVA [Suspect]
     Route: 048
     Dates: start: 20060803, end: 20100131
  3. PREMARIN [Concomitant]
     Indication: HORMONE REPLACEMENT THERAPY
     Route: 065
     Dates: start: 20030101
  4. VITAMINS (UNSPECIFIED) [Concomitant]
     Route: 065
  5. GINKGO BILOBA FORTE [Concomitant]
     Route: 065
  6. CALCIUM (UNSPECIFIED) [Concomitant]
     Route: 065
  7. IBUPROFEN [Concomitant]
     Route: 065
  8. VITAMIN E [Concomitant]
     Route: 065
  9. ALENDRONATE SODIUM [Suspect]
     Indication: OSTEOPOROSIS
     Route: 048
     Dates: start: 20100302, end: 20100630

REACTIONS (9)
  - SPINAL OSTEOARTHRITIS [None]
  - RADIUS FRACTURE [None]
  - BACK DISORDER [None]
  - GINGIVAL RECESSION [None]
  - FEMUR FRACTURE [None]
  - INTERVERTEBRAL DISC DEGENERATION [None]
  - SARCOIDOSIS [None]
  - ULNA FRACTURE [None]
  - FALL [None]
